FAERS Safety Report 21788735 (Version 1)
Quarter: 2022Q4

REPORT INFORMATION
  Report Type: Spontaneous
  Country: US (occurrence: US)
  Receive Date: 20221228
  Receipt Date: 20221228
  Transmission Date: 20230112
  Serious: No
  Sender: FDA-Public Use
  Company Number: US-PFIZER INC-PV202200132159

PATIENT
  Age: 72 Year
  Sex: Female

DRUGS (1)
  1. IBRANCE [Suspect]
     Active Substance: PALBOCICLIB
     Dosage: 100 MG, 1X/DAY (100MG TABLET-TAKE 1 TABLET BY MOUTH ONCE DAILY ON DAYS 1-21 EVERY 28 DAYS)
     Route: 048

REACTIONS (1)
  - Neutrophil count decreased [Unknown]
